FAERS Safety Report 6606559-8 (Version None)
Quarter: 2010Q1

REPORT INFORMATION
  Report Type: 
  Country: None (occurrence: None)
  Receive Date: 20100226
  Receipt Date: 20100218
  Transmission Date: 20100710
  Serious: Yes (Other)
  Sender: FDA-Public Use
  Company Number: US-ABBOTT-09P-163-0601859-00

PATIENT
  Sex: Male
  Weight: 83.082 kg

DRUGS (4)
  1. KALETRA [Suspect]
     Indication: HIV INFECTION
     Route: 048
     Dates: start: 20071201
  2. INTELENCE [Concomitant]
     Indication: HIV INFECTION
     Route: 048
  3. ISENTRESS [Concomitant]
     Indication: HIV INFECTION
     Route: 048
  4. MULTIPLE UNKNOWN CARDIAC MEDICATIONS [Concomitant]
     Indication: CARDIAC DISORDER

REACTIONS (5)
  - CARDIAC FAILURE CONGESTIVE [None]
  - CARDIOMYOPATHY [None]
  - DYSPHONIA [None]
  - LIPODYSTROPHY ACQUIRED [None]
  - VOCAL CORD PARALYSIS [None]
